FAERS Safety Report 5989290-1 (Version None)
Quarter: 2008Q4

REPORT INFORMATION
  Report Type: 
  Country: None (occurrence: None)
  Receive Date: 20081205
  Receipt Date: 20081125
  Transmission Date: 20090506
  Serious: Yes (Hospitalization)
  Sender: FDA-Public Use
  Company Number: IPS_01364_2008

PATIENT
  Sex: Female

DRUGS (1)
  1. APO-GO (APO-GO - APOMORPHINE HYDROCHLOARIDE) (NOT SPECIFIED) [Suspect]
     Indication: DRUG USE FOR UNKNOWN INDICATION
     Dosage: (6 MG PER HOUR FOR UNKNOWN [FROM 08:00 H. TO 01:00 H. DAILY] SUBCUTANEOUS)
     Route: 058
     Dates: start: 20080626

REACTIONS (2)
  - FALL [None]
  - HIP FRACTURE [None]
